FAERS Safety Report 13255518 (Version 4)
Quarter: 2018Q4

REPORT INFORMATION
  Report Type: Report from Study
  Country: BR (occurrence: BR)
  Receive Date: 20170221
  Receipt Date: 20181219
  Transmission Date: 20190204
  Serious: No
  Sender: FDA-Public Use
  Company Number: PHHY2017BR021418

PATIENT
  Age: 48 Year
  Sex: Male
  Weight: 117 kg

DRUGS (9)
  1. HUMIRA [Suspect]
     Active Substance: ADALIMUMAB
     Indication: PRODUCT USED FOR UNKNOWN INDICATION
     Route: 065
  2. COSENTYX [Suspect]
     Active Substance: SECUKINUMAB
     Indication: PSORIATIC ARTHROPATHY
     Dosage: 300 MG, QW
     Route: 058
     Dates: start: 20170104
  3. COSENTYX [Suspect]
     Active Substance: SECUKINUMAB
     Indication: PSORIASIS
     Dosage: 300 MG, QW
     Route: 058
     Dates: start: 20170111
  4. COSENTYX [Suspect]
     Active Substance: SECUKINUMAB
     Dosage: 300 MG, QMO
     Route: 058
     Dates: start: 20170328
  5. COSENTYX [Suspect]
     Active Substance: SECUKINUMAB
     Dosage: 300 MG, QW
     Route: 058
     Dates: start: 20170118
  6. COSENTYX [Suspect]
     Active Substance: SECUKINUMAB
     Dosage: 300 MG, QMO
     Route: 058
     Dates: start: 20170201
  7. COSENTYX [Suspect]
     Active Substance: SECUKINUMAB
     Dosage: UNK
     Route: 058
     Dates: start: 20170529
  8. COSENTYX [Suspect]
     Active Substance: SECUKINUMAB
     Dosage: 300 MG, QMO
     Route: 058
  9. COSENTYX [Suspect]
     Active Substance: SECUKINUMAB
     Dosage: 300 MG, QW
     Route: 058
     Dates: start: 20170125

REACTIONS (18)
  - Inappropriate schedule of product administration [Unknown]
  - Weight increased [Not Recovered/Not Resolved]
  - Metabolic syndrome [Unknown]
  - Blister [Recovered/Resolved]
  - Gait inability [Unknown]
  - Muscle rigidity [Unknown]
  - Blood pressure increased [Recovered/Resolved]
  - Skin infection [Recovering/Resolving]
  - Stress [Unknown]
  - Sunburn [Recovering/Resolving]
  - Skin exfoliation [Not Recovered/Not Resolved]
  - Agitation [Unknown]
  - Hypokinesia [Not Recovered/Not Resolved]
  - Head discomfort [Not Recovered/Not Resolved]
  - Mood altered [Unknown]
  - Skin atrophy [Not Recovered/Not Resolved]
  - Speech disorder [Unknown]
  - Erythema [Unknown]

NARRATIVE: CASE EVENT DATE: 20170429
